FAERS Safety Report 18121428 (Version 1)
Quarter: 2020Q3

REPORT INFORMATION
  Report Type: Spontaneous
  Country: US (occurrence: US)
  Receive Date: 20200807
  Receipt Date: 20200807
  Transmission Date: 20201103
  Serious: No
  Sender: FDA-Public Use
  Company Number: US-JNJFOC-20200742359

PATIENT
  Sex: Female
  Weight: 81.72 kg

DRUGS (1)
  1. PEPCID COMPLETE [Suspect]
     Active Substance: CALCIUM CARBONATE\FAMOTIDINE\MAGNESIUM HYDROXIDE
     Indication: GASTROOESOPHAGEAL REFLUX DISEASE
     Dosage: 1 TWICE A DAY; DATE OF LAST ADMINISTRATION: 28?JUL?2020
     Route: 048
     Dates: start: 2010

REACTIONS (1)
  - Diarrhoea [Not Recovered/Not Resolved]
